FAERS Safety Report 19768735 (Version 1)
Quarter: 2021Q3

REPORT INFORMATION
  Report Type: Other
  Country: RU (occurrence: RU)
  Receive Date: 20210831
  Receipt Date: 20210831
  Transmission Date: 20211014
  Serious: Yes (Hospitalization, Other)
  Sender: FDA-Public Use
  Company Number: RU-DEXPHARM-20211417

PATIENT
  Age: 28 Year
  Sex: Female
  Weight: 60 kg

DRUGS (10)
  1. SOLU?MEDROL [Suspect]
     Active Substance: METHYLPREDNISOLONE SODIUM SUCCINATE
  2. PREDNISOLONE. [Suspect]
     Active Substance: PREDNISOLONE
     Indication: ARTHRITIS REACTIVE
  3. LEVOMEKOL [Concomitant]
     Active Substance: CHLORAMPHENICOL\6-METHYLURACIL
  4. PLAQUENIL [Suspect]
     Active Substance: HYDROXYCHLOROQUINE SULFATE
  5. PREDNISOLONE. [Suspect]
     Active Substance: PREDNISOLONE
     Indication: ARTHRITIS REACTIVE
     Dosage: INCREASED UP TO 5 TABLETS A DAY
  6. PREDNISOLONE. [Suspect]
     Active Substance: PREDNISOLONE
     Indication: ARTHRITIS REACTIVE
     Dosage: ONCE
     Route: 050
  7. SINAFLAN [Concomitant]
     Active Substance: FLUOCINOLONE ACETONIDE
  8. PLAQUENIL [Suspect]
     Active Substance: HYDROXYCHLOROQUINE SULFATE
     Dosage: 200 MG WITH INCREASED UP TO 2 TABLETS
     Dates: start: 20191109
  9. SOLU?MEDROL [Suspect]
     Active Substance: METHYLPREDNISOLONE SODIUM SUCCINATE
  10. OMEPRAZOLE. [Suspect]
     Active Substance: OMEPRAZOLE
     Dates: start: 20191106

REACTIONS (1)
  - Toxic epidermal necrolysis [Recovered/Resolved]
